FAERS Safety Report 23814816 (Version 1)
Quarter: 2024Q2

REPORT INFORMATION
  Report Type: Spontaneous
  Country: FR (occurrence: FR)
  Receive Date: 20240503
  Receipt Date: 20240503
  Transmission Date: 20240716
  Serious: Yes (Hospitalization, Other)
  Sender: FDA-Public Use
  Company Number: FR-AFSSAPS-LL2024000766

PATIENT
  Age: 77 Year
  Sex: Female
  Weight: 138 kg

DRUGS (2)
  1. LINEZOLID [Suspect]
     Active Substance: LINEZOLID
     Indication: Erysipelas
     Dosage: UNK
     Route: 048
     Dates: start: 20240311, end: 20240318
  2. AZACTAM [Suspect]
     Active Substance: AZTREONAM
     Indication: Erysipelas
     Route: 051
     Dates: start: 20240311

REACTIONS (1)
  - Toxic skin eruption [Not Recovered/Not Resolved]

NARRATIVE: CASE EVENT DATE: 20240314
